FAERS Safety Report 19618404 (Version 1)
Quarter: 2021Q3

REPORT INFORMATION
  Report Type: Spontaneous
  Country: US (occurrence: US)
  Receive Date: 20210727
  Receipt Date: 20210727
  Transmission Date: 20211014
  Serious: No
  Sender: FDA-Public Use
  Company Number: US-ROCHE-2779773

PATIENT
  Age: 61 Year
  Sex: Female

DRUGS (2)
  1. XELODA [Suspect]
     Active Substance: CAPECITABINE
     Route: 048
     Dates: start: 202102
  2. XELODA [Suspect]
     Active Substance: CAPECITABINE
     Indication: PRODUCT USED FOR UNKNOWN INDICATION
     Route: 048
     Dates: start: 202101

REACTIONS (9)
  - Diarrhoea [Unknown]
  - Fatigue [Unknown]
  - Peripheral swelling [Unknown]
  - Haemoglobin decreased [Unknown]
  - Depression [Unknown]
  - Sensitive skin [Unknown]
  - Asthenia [Unknown]
  - Dyspnoea [Unknown]
  - Headache [Unknown]

NARRATIVE: CASE EVENT DATE: 20210215
